FAERS Safety Report 13500450 (Version 2)
Quarter: 2017Q2

REPORT INFORMATION
  Report Type: Spontaneous
  Country: IT (occurrence: IT)
  Receive Date: 20170501
  Receipt Date: 20170530
  Transmission Date: 20170830
  Serious: Yes (Other)
  Sender: FDA-Public Use
  Company Number: IT-BAUSCH-BL-2017-011221

PATIENT
  Age: 45 Year
  Sex: Male

DRUGS (4)
  1. FLUOROURACIL. [Suspect]
     Active Substance: FLUOROURACIL
     Indication: NASOPHARYNGEAL CANCER
     Dosage: EVERY 4 WEEKS
     Route: 065
  2. CISPLATIN. [Suspect]
     Active Substance: CISPLATIN
     Indication: NASOPHARYNGEAL CANCER
     Route: 065
  3. DOCETAXEL. [Suspect]
     Active Substance: DOCETAXEL
     Indication: NASOPHARYNGEAL CANCER
     Route: 065
  4. CISPLATIN. [Suspect]
     Active Substance: CISPLATIN
     Route: 065

REACTIONS (14)
  - Thrombocytopenia [Unknown]
  - Transaminases increased [Unknown]
  - Vomiting [Unknown]
  - Therapeutic response decreased [Unknown]
  - Tongue oedema [Unknown]
  - Nausea [Unknown]
  - Alopecia [Unknown]
  - Mucosal inflammation [Unknown]
  - Epistaxis [Unknown]
  - Hiccups [Unknown]
  - Ear infection [Unknown]
  - Leukopenia [Unknown]
  - Asthenia [Unknown]
  - Diarrhoea [Unknown]
